APPROVED DRUG PRODUCT: DEXACORT
Active Ingredient: DEXAMETHASONE SODIUM PHOSPHATE
Strength: EQ 0.1MG PHOSPHATE/INH
Dosage Form/Route: AEROSOL, METERED;INHALATION
Application: N013413 | Product #001
Applicant: UCB INC
Approved: Approved Prior to Jan 1, 1982 | RLD: No | RS: No | Type: DISCN